FAERS Safety Report 10735900 (Version 1)
Quarter: 2015Q1

REPORT INFORMATION
  Report Type: Spontaneous
  Country: US (occurrence: None)
  Receive Date: 20150122
  Receipt Date: 20150122
  Transmission Date: 20150721
  Serious: Yes (Other)
  Sender: FDA-Public Use
  Company Number: None

PATIENT
  Sex: Female

DRUGS (1)
  1. JOHNSONS BABY POWDER [Suspect]
     Active Substance: TALC
     Route: 061

REACTIONS (5)
  - Exposure to toxic agent [None]
  - Omentectomy [None]
  - Dermatitis contact [None]
  - Gastric disorder [None]
  - Ovarian cancer [None]
